FAERS Safety Report 9292759 (Version 1)
Quarter: 2013Q2

REPORT INFORMATION
  Report Type: Spontaneous
  Country: FI (occurrence: FI)
  Receive Date: 20130516
  Receipt Date: 20130516
  Transmission Date: 20140414
  Serious: Yes (Death, Hospitalization, Other)
  Sender: FDA-Public Use
  Company Number: FI-PFIZER INC-FI-WYE-H05285308

PATIENT
  Age: 90 Year
  Sex: Female

DRUGS (13)
  1. SOMAC [Suspect]
     Dosage: 40 MG, 1X/DAY
     Route: 048
     Dates: start: 20080325, end: 20080508
  2. ALTACE [Suspect]
     Indication: HYPERTENSION
     Dosage: 10 MG, 1X/DAY
     Route: 048
     Dates: start: 20070510, end: 20080508
  3. ROCEPHALIN [Suspect]
     Indication: PNEUMONIA
     Dosage: 2 G, 1X/DAY
     Route: 042
     Dates: start: 20080506, end: 20080508
  4. ZINACEF [Suspect]
     Indication: PNEUMONIA
     Dosage: 1.5 G, 3X/DAY
     Route: 042
     Dates: start: 20080502, end: 20080506
  5. ACETYLSALICYLIC ACID [Concomitant]
     Dosage: UNK
     Route: 048
     Dates: start: 2008
  6. EMCONCOR [Concomitant]
     Dosage: 2.5 MG, UNK
     Route: 048
     Dates: start: 20070522
  7. PLAVIX [Concomitant]
     Route: 065
  8. DIGOXIN [Concomitant]
     Dosage: 62.5 UG, UNK
     Route: 048
     Dates: start: 20040910
  9. FURESIS [Concomitant]
     Dosage: 40 MG, UNK
     Route: 048
     Dates: start: 20070516
  10. ISOSORBIDE MONONITRATE [Concomitant]
     Dosage: UNK
     Route: 048
     Dates: start: 20040708
  11. KALINORM [Concomitant]
     Indication: HYPOKALAEMIA
     Dosage: 3000 MG, UNK
     Route: 048
     Dates: start: 20080506
  12. MAREVAN ^BRITISH DRUG HOUSES^ [Concomitant]
     Route: 065
  13. ORMOX [Concomitant]
     Dosage: 20 MG, UNK
     Dates: start: 20040708

REACTIONS (8)
  - Pancytopenia [Fatal]
  - Pneumonia [Fatal]
  - Foreign body aspiration [Unknown]
  - Infection [Unknown]
  - Fall [Unknown]
  - Pelvic fracture [Unknown]
  - Haemoglobin decreased [Unknown]
  - Hypokalaemia [Unknown]
